FAERS Safety Report 8808994 (Version 1)
Quarter: 2012Q4

REPORT INFORMATION
  Report Type: 
  Country: JP (occurrence: None)
  Receive Date: 20120921
  Receipt Date: 20120921
  Transmission Date: 20130627
  Serious: Yes (Death, Other)
  Sender: FDA-Public Use
  Company Number: 2012SP001913

PATIENT
  Age: 66 Year
  Sex: Female

DRUGS (4)
  1. EPIRUBICIN (EPIRUBICIN) (EPIRUBICIN) [Suspect]
     Indication: BREAST CANCER
  2. FLUOROURACIL (FLUOROURACIL) [Suspect]
  3. PACLITAXEL [Suspect]
  4. CYCLOPHOSPHAMIDE [Suspect]

REACTIONS (2)
  - Second primary malignancy [None]
  - Squamous cell carcinoma [None]
